FAERS Safety Report 5760538-1 (Version None)
Quarter: 2008Q2

REPORT INFORMATION
  Report Type: 
  Country: None (occurrence: None)
  Receive Date: 20080602
  Receipt Date: 20080516
  Transmission Date: 20081010
  Serious: Yes (Hospitalization)
  Sender: FDA-Public Use
  Company Number: 2008AL005324

PATIENT
  Age: 72 Year
  Sex: Male

DRUGS (3)
  1. DIGOXIN [Suspect]
     Indication: ARRHYTHMIA
     Dosage: 0.25 MG, QD, PO
     Route: 048
     Dates: start: 20080201, end: 20080425
  2. COUMADIN [Concomitant]
  3. LOPRESSOR [Concomitant]

REACTIONS (4)
  - DIZZINESS [None]
  - DYSPNOEA [None]
  - HEART RATE DECREASED [None]
  - VOMITING [None]
